FAERS Safety Report 20981780 (Version 1)
Quarter: 2022Q2

REPORT INFORMATION
  Report Type: Spontaneous
  Country: IE (occurrence: IE)
  Receive Date: 20220620
  Receipt Date: 20220620
  Transmission Date: 20220720
  Serious: Yes (Other)
  Sender: FDA-Public Use
  Company Number: IE-ROCHE-3101511

PATIENT
  Sex: Male
  Weight: 100.5 kg

DRUGS (10)
  1. CARBOPLATIN [Suspect]
     Active Substance: CARBOPLATIN
     Indication: Follicular lymphoma
     Dosage: LAST DOSE DATE: 20/FEB/2022
     Dates: start: 20220104
  2. ETOPOSIDE [Suspect]
     Active Substance: ETOPOSIDE
     Indication: Follicular lymphoma
     Dosage: LAST DOSE DATE: 20/FEB/2022
     Route: 042
     Dates: start: 20220104
  3. VINCRISTINE [Suspect]
     Active Substance: VINCRISTINE
     Indication: Follicular lymphoma
     Dosage: LAST DOSE DATE: 05/NOV/2021
     Dates: start: 20210414
  4. DOXORUBICIN [Suspect]
     Active Substance: DOXORUBICIN
     Indication: Follicular lymphoma
     Dosage: LAST DOSE DATE: 05/NOV/2021
     Dates: start: 20210414
  5. CYCLOPHOSPHAMIDE [Suspect]
     Active Substance: CYCLOPHOSPHAMIDE
     Indication: Follicular lymphoma
     Dosage: LAST DOSE DATE: 05/NOV/2021
     Dates: start: 20210414
  6. IFOSFAMIDE [Suspect]
     Active Substance: IFOSFAMIDE
     Indication: Follicular lymphoma
     Dosage: LAST DOSE DATE: 20/FEB/2022
     Dates: start: 20220104
  7. IDELALISIB [Suspect]
     Active Substance: IDELALISIB
     Indication: Follicular lymphoma
     Dosage: LAST DOSE DATE: 17/MAY/2022
     Dates: start: 20220225
  8. RITUXIMAB [Suspect]
     Active Substance: RITUXIMAB
     Indication: Follicular lymphoma
     Dosage: LAST DOSE DATE: 20/FEB/2022
     Dates: start: 20220104
  9. OBINUTUZUMAB [Suspect]
     Active Substance: OBINUTUZUMAB
     Indication: Follicular lymphoma
     Dosage: LAST DOSE DATE: 05/NOV/2021
     Dates: start: 20210414
  10. PREDNISONE [Suspect]
     Active Substance: PREDNISONE
     Indication: Follicular lymphoma
     Dosage: LAST DOSE DATE: 05/NOV/2021
     Dates: start: 20210414

REACTIONS (3)
  - Disease progression [Unknown]
  - Blood lactate dehydrogenase increased [Unknown]
  - Treatment failure [Unknown]
